FAERS Safety Report 9472149 (Version 3)
Quarter: 2014Q4

REPORT INFORMATION
  Report Type: Spontaneous
  Country: CO (occurrence: CO)
  Receive Date: 20130823
  Receipt Date: 20141106
  Transmission Date: 20150529
  Serious: Yes (Other)
  Sender: FDA-Public Use
  Company Number: CO-AMGEN-COLSP2013059111

PATIENT
  Age: 57 Year
  Sex: Female

DRUGS (4)
  1. ADVIL [Suspect]
     Active Substance: IBUPROFEN
     Indication: HEADACHE
  2. ENALAPRIL [Concomitant]
     Active Substance: ENALAPRIL
     Indication: HYPERTENSION
     Dosage: 20 MG, 1X/DAY
     Route: 048
     Dates: start: 2003
  3. ADVIL [Suspect]
     Active Substance: IBUPROFEN
     Indication: PAIN
     Dosage: AS NECESSARY
     Route: 048
  4. ENBREL [Suspect]
     Active Substance: ETANERCEPT
     Indication: RHEUMATOID ARTHRITIS
     Dosage: 50 MG, QWK
     Route: 058
     Dates: start: 2009

REACTIONS (9)
  - Feeling hot [Recovered/Resolved]
  - Arthropathy [Unknown]
  - Bone pain [Unknown]
  - Arthralgia [Recovered/Resolved]
  - Headache [Recovered/Resolved]
  - Pain in extremity [Unknown]
  - Diabetes mellitus [Recovered/Resolved]
  - Flushing [Recovered/Resolved]
  - Injection site mass [Recovering/Resolving]

NARRATIVE: CASE EVENT DATE: 2010
